FAERS Safety Report 8188008-4 (Version None)
Quarter: 2012Q1

REPORT INFORMATION
  Report Type: 
  Country: None (occurrence: None)
  Receive Date: 20120302
  Receipt Date: 20120302
  Transmission Date: 20120608
  Serious: Yes (Other)
  Sender: FDA-Public Use
  Company Number: None

PATIENT
  Sex: Female
  Weight: 83.0083 kg

DRUGS (4)
  1. NORINYL 1+50 21-DAY [Concomitant]
  2. MULTI-VITAMINS [Concomitant]
  3. VALTREX [Concomitant]
  4. REBIF [Suspect]
     Indication: MULTIPLE SCLEROSIS
     Dosage: 44MCG(0.5ML) 3 PER WEEK SUBCUTANEOUSLY
     Route: 058
     Dates: start: 20120120, end: 20120301

REACTIONS (4)
  - BLOOD PRESSURE INCREASED [None]
  - HEADACHE [None]
  - DYSPEPSIA [None]
  - INFLUENZA LIKE ILLNESS [None]
